FAERS Safety Report 15778022 (Version 1)
Quarter: 2018Q4

REPORT INFORMATION
  Report Type: Spontaneous
  Country: US (occurrence: US)
  Receive Date: 20181231
  Receipt Date: 20181231
  Transmission Date: 20190205
  Serious: No
  Sender: FDA-Public Use
  Company Number: US-GE HEALTHCARE LIFE SCIENCES-2018CSU004748

PATIENT
  Age: 23 Year
  Sex: Male

DRUGS (1)
  1. OMNIPAQUE [Suspect]
     Active Substance: IOHEXOL
     Indication: CHEST PAIN
     Dosage: 75 ML, SINGLE
     Route: 042
     Dates: start: 20181116, end: 20181116

REACTIONS (2)
  - Oropharyngeal pain [Not Recovered/Not Resolved]
  - Contrast media reaction [Not Recovered/Not Resolved]

NARRATIVE: CASE EVENT DATE: 20181116
